FAERS Safety Report 8534852-0 (Version None)
Quarter: 2012Q3

REPORT INFORMATION
  Report Type: 
  Country: None (occurrence: None)
  Receive Date: 20120724
  Receipt Date: 20120709
  Transmission Date: 20120928
  Serious: No
  Sender: FDA-Public Use
  Company Number: US-ASTRAZENECA-2012SE06044

PATIENT
  Age: 71 Year
  Sex: Female
  Weight: 81.6 kg

DRUGS (4)
  1. PRILOSEC [Suspect]
     Route: 048
  2. PRILOSEC OTC [Suspect]
     Route: 048
  3. PRILOSEC [Suspect]
     Dosage: GENERIC
     Route: 048
  4. NEXIUM [Suspect]
     Indication: GASTROINTESTINAL HYPOMOTILITY
     Route: 048

REACTIONS (5)
  - DRUG DOSE OMISSION [None]
  - DRUG INEFFECTIVE [None]
  - GASTRIC DISORDER [None]
  - OFF LABEL USE [None]
  - OEDEMA PERIPHERAL [None]
